FAERS Safety Report 8376016-X (Version None)
Quarter: 2012Q2

REPORT INFORMATION
  Report Type: 
  Country: None (occurrence: None)
  Receive Date: 20120522
  Receipt Date: 20120515
  Transmission Date: 20120825
  Serious: Yes (Other)
  Sender: FDA-Public Use
  Company Number: PHHY2012CA042672

PATIENT
  Sex: Male

DRUGS (1)
  1. MIACALCIN [Suspect]
     Indication: LOWER LIMB FRACTURE
     Dosage: UNK
     Route: 045

REACTIONS (1)
  - POLLAKIURIA [None]
